FAERS Safety Report 8429938 (Version 8)
Quarter: 2013Q3

REPORT INFORMATION
  Report Type: Spontaneous
  Country: US (occurrence: US)
  Receive Date: 20120228
  Receipt Date: 20130828
  Transmission Date: 20140515
  Serious: Yes (Other)
  Sender: FDA-Public Use
  Company Number: US-PFIZER INC-2012047091

PATIENT
  Age: 76 Year
  Sex: Female
  Weight: 79.37 kg

DRUGS (12)
  1. LYRICA [Suspect]
     Indication: DIABETIC NEUROPATHY
     Dosage: 300 MG, 2X/DAY
     Route: 048
     Dates: end: 201304
  2. LYRICA [Suspect]
     Indication: DIABETIC NEUROPATHY
     Dosage: 300 MG, 2X/DAY
     Route: 048
     Dates: end: 2013
  3. LYRICA [Suspect]
     Indication: DIABETIC NEUROPATHY
     Dosage: 300 MG, 2X/DAY
     Route: 048
     Dates: start: 2013
  4. GLYBURIDE [Concomitant]
     Indication: DIABETES MELLITUS
     Dosage: 10 MG, 2X/DAY
     Route: 048
  5. ISOSORBIDE [Concomitant]
     Indication: CARDIAC DISORDER
     Dosage: 60MG (BY TAKING 2 TABLET OF 30MG) SUBLINGUALLY IN THE MORNING AND 1 TABLET OF 30MG
     Route: 060
  6. SECTRAL [Concomitant]
     Dosage: 400MG ORALLY (BY TAKING 2 CAPSULES OF 200MG) IN THE MORNING AND 200MG CAPSULE AT NIGHT
     Route: 048
  7. PLAVIX [Concomitant]
     Indication: CARDIAC DISORDER
     Dosage: 75 MG, 1X/DAY
  8. LISINOPRIL [Concomitant]
     Dosage: 10 MG, 1X/DAY
  9. LIVALO [Concomitant]
     Indication: CARDIAC DISORDER
     Dosage: UNK
  10. LORTAB [Concomitant]
     Indication: ARTHRITIS
     Dosage: UNK
  11. NITROGLYCERIN [Concomitant]
     Indication: CARDIAC DISORDER
     Dosage: UNK
     Route: 060
  12. VALIUM [Concomitant]
     Dosage: UNK

REACTIONS (10)
  - Malaise [Unknown]
  - Memory impairment [Unknown]
  - Feeling abnormal [Unknown]
  - Withdrawal syndrome [Unknown]
  - Burning sensation [Not Recovered/Not Resolved]
  - Insomnia [Unknown]
  - Hyperhidrosis [Unknown]
  - Pain in extremity [Unknown]
  - Local swelling [Unknown]
  - Malaise [Recovered/Resolved]
